FAERS Safety Report 10051318 (Version 1)
Quarter: 2014Q2

REPORT INFORMATION
  Report Type: Spontaneous
  Country: US (occurrence: US)
  Receive Date: 20140401
  Receipt Date: 20140401
  Transmission Date: 20141212
  Serious: No
  Sender: FDA-Public Use
  Company Number: US-PFIZER INC-2014089010

PATIENT
  Age: 63 Year
  Sex: Male
  Weight: 63.49 kg

DRUGS (2)
  1. XELJANZ [Suspect]
     Indication: RHEUMATOID ARTHRITIS
     Dosage: 5 MG, 2X/DAY
     Route: 048
     Dates: start: 201302, end: 201403
  2. LEFLUNOMIDE [Concomitant]
     Dosage: UNK

REACTIONS (2)
  - Skin lesion [Unknown]
  - Acne [Unknown]
